FAERS Safety Report 8053336-X (Version None)
Quarter: 2012Q1

REPORT INFORMATION
  Report Type: 
  Country: None (occurrence: None)
  Receive Date: 20120118
  Receipt Date: 20111227
  Transmission Date: 20120608
  Serious: Yes (Hospitalization)
  Sender: FDA-Public Use
  Company Number: TW-ROCHE-1029289

PATIENT
  Sex: Female

DRUGS (2)
  1. HERCEPTIN [Suspect]
     Indication: BREAST CANCER
     Dosage: GIVEN EVERY CYCLE
     Dates: start: 20100930
  2. DOCETAXEL [Suspect]
     Indication: BREAST CANCER
     Dosage: EVERY CYCLE
     Route: 042
     Dates: start: 20100930

REACTIONS (2)
  - METASTASES TO LUNG [None]
  - WHITE BLOOD CELL COUNT DECREASED [None]
